FAERS Safety Report 19426009 (Version 1)
Quarter: 2021Q2

REPORT INFORMATION
  Report Type: Report from Study
  Country: PL (occurrence: PL)
  Receive Date: 20210616
  Receipt Date: 20210616
  Transmission Date: 20210717
  Serious: Yes (Other)
  Sender: FDA-Public Use
  Company Number: NVSC2021PL130914

PATIENT

DRUGS (2)
  1. GALVUS [Suspect]
     Active Substance: VILDAGLIPTIN
     Indication: PRODUCT USED FOR UNKNOWN INDICATION
     Dosage: UNK
     Route: 065
  2. METFORMIN [Suspect]
     Active Substance: METFORMIN HYDROCHLORIDE
     Indication: PRODUCT USED FOR UNKNOWN INDICATION
     Dosage: UNK
     Route: 065

REACTIONS (20)
  - Nephropathy [Unknown]
  - Sleep apnoea syndrome [Unknown]
  - Fatigue [Unknown]
  - Paraesthesia [Unknown]
  - Glycosylated haemoglobin decreased [Unknown]
  - Diabetic neuropathy [Unknown]
  - Weight increased [Unknown]
  - Sensory loss [Unknown]
  - Blood cholesterol increased [Unknown]
  - Blood triglycerides increased [Unknown]
  - Renal disorder [Unknown]
  - Lipids abnormal [Unknown]
  - Thirst [Unknown]
  - Hypoaesthesia [Unknown]
  - Blood glucose decreased [Unknown]
  - Retinopathy [Unknown]
  - Visual impairment [Unknown]
  - Pollakiuria [Unknown]
  - Vision blurred [Unknown]
  - Hypertension [Unknown]
